FAERS Safety Report 10639456 (Version 2)
Quarter: 2015Q1

REPORT INFORMATION
  Report Type: Report from Study
  Country: US (occurrence: US)
  Receive Date: 20141209
  Receipt Date: 20150120
  Transmission Date: 20150720
  Serious: No
  Sender: FDA-Public Use
  Company Number: US-AMGEN-USASL2014094479

PATIENT
  Age: 40 Year
  Sex: Male

DRUGS (2)
  1. ENBREL [Suspect]
     Active Substance: ETANERCEPT
     Indication: PSORIASIS
  2. ENBREL [Suspect]
     Active Substance: ETANERCEPT
     Indication: PSORIATIC ARTHROPATHY
     Dosage: 50 MG, 2 TIMES/WK
     Route: 065
     Dates: start: 20141009

REACTIONS (3)
  - Psoriasis [Not Recovered/Not Resolved]
  - Feeling abnormal [Not Recovered/Not Resolved]
  - Pruritus [Not Recovered/Not Resolved]

NARRATIVE: CASE EVENT DATE: 20141009
